FAERS Safety Report 17850151 (Version 10)
Quarter: 2021Q2

REPORT INFORMATION
  Report Type: Spontaneous
  Country: US (occurrence: US)
  Receive Date: 20200602
  Receipt Date: 20210504
  Transmission Date: 20210717
  Serious: Yes (Hospitalization, Other)
  Sender: FDA-Public Use
  Company Number: US-PFIZER INC-2019-07092

PATIENT
  Age: 76 Year
  Sex: Female
  Weight: 72.56 kg

DRUGS (4)
  1. MEKTOVI [Suspect]
     Active Substance: BINIMETINIB
     Indication: COLON CANCER
     Dosage: 45 MG, 2X/DAY
     Route: 048
     Dates: start: 20191108
  2. BRAFTOVI [Suspect]
     Active Substance: ENCORAFENIB
     Indication: COLON CANCER
     Dosage: 300 MG, 1X/DAY  (4 CAPSULES ONCE DAILY)
     Route: 048
     Dates: start: 20191129
  3. BRAFTOVI [Suspect]
     Active Substance: ENCORAFENIB
     Dosage: 450 MG, 1X/DAY
     Route: 048
     Dates: start: 201912
  4. MEKTOVI [Suspect]
     Active Substance: BINIMETINIB
     Dosage: 45 MG, 2X/DAY
     Route: 048
     Dates: start: 201912

REACTIONS (13)
  - Infection [Unknown]
  - Diarrhoea [Recovered/Resolved]
  - Blood potassium decreased [Unknown]
  - Hypoacusis [Unknown]
  - Back pain [Unknown]
  - Pain [Unknown]
  - Visual impairment [Unknown]
  - Haemoglobin decreased [Unknown]
  - Vitreous floaters [Unknown]
  - Off label use [Unknown]
  - COVID-19 [Unknown]
  - Nephrolithiasis [Unknown]
  - Fatigue [Unknown]

NARRATIVE: CASE EVENT DATE: 20200518
